FAERS Safety Report 4528525-9 (Version None)
Quarter: 2004Q4

REPORT INFORMATION
  Report Type: 
  Country: None (occurrence: None)
  Receive Date: 20041216
  Receipt Date: 20040521
  Transmission Date: 20050328
  Serious: No
  Sender: FDA-Public Use
  Company Number: US-BRISTOL-MYERS SQUIBB COMPANY-12593836

PATIENT
  Age: 77 Year
  Sex: Male
  Weight: 79 kg

DRUGS (9)
  1. QUESTRAN [Suspect]
     Indication: DIARRHOEA
     Route: 048
  2. LOPERAMIDE HCL [Concomitant]
  3. INSULIN [Concomitant]
  4. METOPROLOL [Concomitant]
  5. PLAVIX [Concomitant]
  6. ISOSORBIDE [Concomitant]
  7. QUININE [Concomitant]
  8. LIPITOR [Concomitant]
  9. PROTONIX [Concomitant]

REACTIONS (1)
  - HEADACHE [None]
